FAERS Safety Report 23703591 (Version 3)
Quarter: 2024Q3

REPORT INFORMATION
  Report Type: Spontaneous
  Country: US (occurrence: US)
  Receive Date: 20240403
  Receipt Date: 20240911
  Transmission Date: 20241017
  Serious: Yes (Hospitalization, Other)
  Sender: INCYTE
  Company Number: US-INCYTE CORPORATION-2024IN002328

PATIENT

DRUGS (1)
  1. JAKAFI [Suspect]
     Active Substance: RUXOLITINIB
     Dosage: 25 MILLIGRAM, BID
     Route: 048

REACTIONS (11)
  - Cervical spinal stenosis [Unknown]
  - COVID-19 [Recovered/Resolved]
  - Product packaging quantity issue [Unknown]
  - Weight loss poor [Unknown]
  - Product dose omission issue [Unknown]
  - Pain [Unknown]
  - Dysplasia [Unknown]
  - Post-acute COVID-19 syndrome [Unknown]
  - Infection [Unknown]
  - Fatigue [Not Recovered/Not Resolved]
  - Nausea [Unknown]
